FAERS Safety Report 19366784 (Version 1)
Quarter: 2021Q2

REPORT INFORMATION
  Report Type: Report from Study
  Country: BR (occurrence: BR)
  Receive Date: 20210603
  Receipt Date: 20210603
  Transmission Date: 20210717
  Serious: Yes (Other)
  Sender: FDA-Public Use
  Company Number: NVSC2021BR036555

PATIENT
  Age: 59 Year
  Sex: Male

DRUGS (5)
  1. DECADRON [Concomitant]
     Active Substance: DEXAMETHASONE
     Indication: PRODUCT USED FOR UNKNOWN INDICATION
     Dosage: UNK
     Route: 065
  2. VONAU [Concomitant]
     Active Substance: ONDANSETRON HYDROCHLORIDE
     Indication: NAUSEA
     Dosage: 8 MG
     Route: 065
  3. VOTRIENT [Suspect]
     Active Substance: PAZOPANIB HYDROCHLORIDE
     Indication: METASTATIC RENAL CELL CARCINOMA
     Dosage: 2 DF, QD (2 TABLET) (STOPED 3 WEEKS AGO)
     Route: 065
     Dates: start: 20201022
  4. CAPTOPRIL. [Concomitant]
     Active Substance: CAPTOPRIL
     Indication: HYPERTENSION
     Dosage: UNK
     Route: 065
  5. VOTRIENT [Suspect]
     Active Substance: PAZOPANIB HYDROCHLORIDE
     Dosage: 1 DF, QD (START DATE: 2 OR 3 WEEKS)
     Route: 065

REACTIONS (27)
  - Swelling [Recovering/Resolving]
  - Blood urine present [Unknown]
  - Pain [Not Recovered/Not Resolved]
  - Headache [Recovering/Resolving]
  - Memory impairment [Not Recovered/Not Resolved]
  - Gait disturbance [Unknown]
  - Malignant neoplasm progression [Unknown]
  - Pain in extremity [Unknown]
  - Metastatic renal cell carcinoma [Unknown]
  - Abdominal pain [Recovering/Resolving]
  - Abdominal distension [Unknown]
  - Inappropriate schedule of product administration [Recovered/Resolved]
  - Malaise [Unknown]
  - Haematemesis [Recovered/Resolved]
  - Metastases to bone [Unknown]
  - Metastases to kidney [Not Recovered/Not Resolved]
  - Feeling abnormal [Unknown]
  - Haematemesis [Recovered/Resolved]
  - Metastases to central nervous system [Unknown]
  - Decreased appetite [Recovering/Resolving]
  - Confusional state [Unknown]
  - Vomiting [Recovering/Resolving]
  - Product dose omission issue [Unknown]
  - Movement disorder [Not Recovered/Not Resolved]
  - Dizziness [Recovering/Resolving]
  - Disorientation [Unknown]
  - Asthenia [Unknown]

NARRATIVE: CASE EVENT DATE: 20210507
